FAERS Safety Report 7806290-7 (Version None)
Quarter: 2011Q4

REPORT INFORMATION
  Report Type: 
  Country: None (occurrence: None)
  Receive Date: 20111011
  Receipt Date: 20111006
  Transmission Date: 20120403
  Serious: Yes (Other)
  Sender: FDA-Public Use
  Company Number: US-PFIZER INC-2011141646

PATIENT
  Sex: Female
  Weight: 61.224 kg

DRUGS (3)
  1. PRISTIQ [Suspect]
     Dosage: 50 MG, 1X/DAY
     Route: 048
     Dates: start: 20110701
  2. AMBIEN [Concomitant]
     Dosage: UNK, 1X/DAY
  3. PRISTIQ [Suspect]
     Indication: DEPRESSION
     Dosage: 50 MG, 1X/DAY
     Route: 048
     Dates: start: 20110622

REACTIONS (6)
  - SURGERY [None]
  - NAUSEA [None]
  - DEPRESSION [None]
  - DIZZINESS [None]
  - PAIN [None]
  - DECREASED APPETITE [None]
